FAERS Safety Report 8264312-6 (Version None)
Quarter: 2012Q2

REPORT INFORMATION
  Report Type: 
  Country: None (occurrence: None)
  Receive Date: 20120406
  Receipt Date: 20120329
  Transmission Date: 20120825
  Serious: Yes (Other)
  Sender: FDA-Public Use
  Company Number: CA-JNJFOC-20120201893

PATIENT
  Sex: Female
  Weight: 76 kg

DRUGS (1)
  1. REMICADE [Suspect]
     Indication: CROHN'S DISEASE
     Route: 042
     Dates: start: 20100801

REACTIONS (5)
  - PELVIC HAEMORRHAGE [None]
  - NAUSEA [None]
  - FATIGUE [None]
  - INFLUENZA LIKE ILLNESS [None]
  - MATERNAL EXPOSURE DURING PREGNANCY [None]
